FAERS Safety Report 6538275-5 (Version None)
Quarter: 2010Q1

REPORT INFORMATION
  Report Type: 
  Country: None (occurrence: None)
  Receive Date: 20100114
  Receipt Date: 20100106
  Transmission Date: 20100710
  Serious: Yes (Death)
  Sender: FDA-Public Use
  Company Number: JP-BAXTER-2010BH000548

PATIENT
  Sex: Male

DRUGS (3)
  1. EXTRANEAL [Suspect]
     Indication: DIABETIC NEPHROPATHY
     Route: 033
     Dates: start: 20081201, end: 20100106
  2. DIANEAL LOW CALCIUM W/ DEXTROSE 1.5% [Suspect]
     Indication: DIABETIC NEPHROPATHY
     Route: 033
     Dates: start: 20081201, end: 20100106
  3. DIANEAL 137 W/ DEXTROSE 2.5% IN PLASTIC CONTAINER [Suspect]
     Indication: DIABETIC NEPHROPATHY
     Route: 033
     Dates: start: 20081201, end: 20100106

REACTIONS (1)
  - CARDIO-RESPIRATORY ARREST [None]
